FAERS Safety Report 7960715-5 (Version None)
Quarter: 2011Q4

REPORT INFORMATION
  Report Type: 
  Country: None (occurrence: None)
  Receive Date: 20111206
  Receipt Date: 20050905
  Transmission Date: 20120403
  Serious: Yes (Other)
  Sender: FDA-Public Use
  Company Number: PHHY2005BR006958

PATIENT
  Age: 67 Year
  Sex: Male
  Weight: 68 kg

DRUGS (4)
  1. EXFORGE [Suspect]
     Indication: HYPERTENSION
     Dosage: 160/5 MG, ONCE A DAY
     Dates: start: 20050905
  2. SOMALGIN [Concomitant]
     Indication: ARTERIAL DISORDER
     Dosage: 1 DF, QD FOR MORE THAN ONE YEAR
  3. GLYBURIDE [Concomitant]
     Indication: HYPERGLYCAEMIA
     Dosage: 0.5 DF, QD
  4. VASOGARD [Concomitant]
     Dosage: 1 DF, QD, MORE THAN ONE YEAR

REACTIONS (1)
  - BLOOD PRESSURE FLUCTUATION [None]
